FAERS Safety Report 14090294 (Version 1)
Quarter: 2017Q4

REPORT INFORMATION
  Report Type: Report from Study
  Country: US (occurrence: US)
  Receive Date: 20171013
  Receipt Date: 20171013
  Transmission Date: 20180321
  Serious: No
  Sender: FDA-Public Use
  Company Number: US-AMGEN-USASL2017095235

PATIENT
  Age: 93 Year
  Sex: Female
  Weight: 51.7 kg

DRUGS (3)
  1. PRADAXA [Concomitant]
     Active Substance: DABIGATRAN ETEXILATE MESYLATE
  2. PROLIA [Suspect]
     Active Substance: DENOSUMAB
     Indication: OSTEOPOROSIS POSTMENOPAUSAL
     Dosage: UNK
     Route: 065
  3. DIOVAN [Concomitant]
     Active Substance: VALSARTAN

REACTIONS (3)
  - Pruritus generalised [Not Recovered/Not Resolved]
  - Weight decreased [Not Recovered/Not Resolved]
  - Hyperhidrosis [Not Recovered/Not Resolved]
